FAERS Safety Report 6743703-6 (Version None)
Quarter: 2010Q2

REPORT INFORMATION
  Report Type: 
  Country: None (occurrence: None)
  Receive Date: 20100527
  Receipt Date: 20100505
  Transmission Date: 20101027
  Serious: Yes (Hospitalization, Other)
  Sender: FDA-Public Use
  Company Number: US-BAYER-201023124NA

PATIENT
  Age: 32 Year
  Sex: Female
  Weight: 74 kg

DRUGS (3)
  1. YAZ [Suspect]
     Indication: CONTRACEPTION
     Route: 048
     Dates: start: 20070101, end: 20090831
  2. MOTRIN [Concomitant]
  3. ANTIBIOTICS [Concomitant]

REACTIONS (8)
  - ABDOMINAL PAIN [None]
  - BACK PAIN [None]
  - BILIARY DYSKINESIA [None]
  - DECREASED APPETITE [None]
  - DIARRHOEA [None]
  - GALLBLADDER DISORDER [None]
  - NAUSEA [None]
  - VOMITING [None]
